FAERS Safety Report 12372862 (Version 2)
Quarter: 2016Q2

REPORT INFORMATION
  Report Type: Spontaneous
  Country: MX (occurrence: MX)
  Receive Date: 20160516
  Receipt Date: 20160609
  Transmission Date: 20160815
  Serious: Yes (Hospitalization)
  Sender: FDA-Public Use
  Company Number: MX-TAKEDA-2016TUS008263

PATIENT
  Sex: Female

DRUGS (1)
  1. TRINTELLIX [Suspect]
     Active Substance: VORTIOXETINE HYDROBROMIDE
     Indication: MAJOR DEPRESSION
     Dosage: 10 MG, QD
     Route: 048
     Dates: start: 20160406, end: 20160415

REACTIONS (6)
  - Rash [Unknown]
  - Lymphadenopathy [Recovered/Resolved]
  - Gastrointestinal infection [Unknown]
  - Vomiting [Unknown]
  - Nausea [Unknown]
  - Acne [Unknown]

NARRATIVE: CASE EVENT DATE: 20160406
